FAERS Safety Report 8068652-5 (Version None)
Quarter: 2012Q1

REPORT INFORMATION
  Report Type: 
  Country: None (occurrence: None)
  Receive Date: 20120124
  Receipt Date: 20111108
  Transmission Date: 20120608
  Serious: No
  Sender: FDA-Public Use
  Company Number: US-AMGEN-USASP2011058352

PATIENT
  Age: 44 Year
  Sex: Female

DRUGS (7)
  1. PREMARIN [Concomitant]
     Dosage: UNK
  2. PROVERA [Concomitant]
  3. PROLIA [Suspect]
     Indication: PRODUCT USED FOR UNKNOWN INDICATION
     Dates: start: 20110922
  4. CALCIUM WITH VITAMIN D [Concomitant]
  5. VITAMIN D [Concomitant]
  6. LISINOPRIL [Concomitant]
     Dosage: UNK
     Dates: start: 20110701
  7. MULTI-VITAMIN [Concomitant]

REACTIONS (13)
  - DIZZINESS [None]
  - ARTHRALGIA [None]
  - BLOOD CHOLESTEROL INCREASED [None]
  - HEART VALVE INCOMPETENCE [None]
  - CHILLS [None]
  - CARDIAC DISORDER [None]
  - HEART RATE IRREGULAR [None]
  - PARAESTHESIA [None]
  - URINARY TRACT INFECTION [None]
  - CHEST PAIN [None]
  - DYSPNOEA [None]
  - FUNGAL INFECTION [None]
  - BONE PAIN [None]
